FAERS Safety Report 5354782-5 (Version None)
Quarter: 2007Q2

REPORT INFORMATION
  Report Type: 
  Country: None (occurrence: None)
  Receive Date: 20070612
  Receipt Date: 20070531
  Transmission Date: 20071010
  Serious: Yes (Hospitalization, Other)
  Sender: FDA-Public Use
  Company Number: US-PFIZER INC-2007045660

PATIENT
  Age: 30 Year
  Sex: Female

DRUGS (5)
  1. DILANTIN [Suspect]
     Indication: CONVULSION
     Dosage: TEXT:200MG AM AND 300MG AT BEDTIME
     Route: 048
  2. NEURONTIN [Concomitant]
     Route: 048
  3. TRAMADOL HCL [Concomitant]
     Route: 048
  4. LEXAPRO [Concomitant]
     Route: 048
  5. VICODIN [Concomitant]
     Route: 048

REACTIONS (12)
  - CHILLS [None]
  - DERMATITIS BULLOUS [None]
  - DYSPHAGIA [None]
  - HEPATITIS [None]
  - HYPERSENSITIVITY [None]
  - HYPOCHLORAEMIA [None]
  - HYPOKALAEMIA [None]
  - MOUTH ULCERATION [None]
  - PAIN IN EXTREMITY [None]
  - PYREXIA [None]
  - SWELLING FACE [None]
  - TOXIC EPIDERMAL NECROLYSIS [None]
